FAERS Safety Report 11810684 (Version 9)
Quarter: 2020Q1

REPORT INFORMATION
  Report Type: Spontaneous
  Country: GB (occurrence: GB)
  Receive Date: 20151208
  Receipt Date: 20200118
  Transmission Date: 20200409
  Serious: Yes (Life-Threatening, Hospitalization, Other)
  Sender: FDA-Public Use
  Company Number: GB-JNJFOC-20151124585

PATIENT
  Age: 52 Year
  Sex: Male

DRUGS (35)
  1. FLUOXETINE [Suspect]
     Active Substance: FLUOXETINE HYDROCHLORIDE
     Dosage: 20, DF SINGLE?OVERDOSE-FORM:UNKNOWN
     Route: 048
     Dates: start: 20141217, end: 20141217
  2. FLUOXETINE [Suspect]
     Active Substance: FLUOXETINE HYDROCHLORIDE
     Dosage: STRENGTH: 20 MG?OVERDOSE-FORM:UNKNOWN
     Route: 048
     Dates: start: 20141201, end: 20141201
  3. TRAMADOL HYDROCHLORIDE. [Concomitant]
     Active Substance: TRAMADOL HYDROCHLORIDE
     Indication: PRODUCT USED FOR UNKNOWN INDICATION
     Dosage: 50-100 MG, Q4H PRN
     Route: 048
     Dates: start: 20140416
  4. CLOPIDOGREL BISULFATE. [Suspect]
     Active Substance: CLOPIDOGREL BISULFATE
     Indication: PRODUCT USED FOR UNKNOWN INDICATION
     Dosage: OVERDOSE
     Route: 065
     Dates: start: 20131008
  5. ATORVASTATIN [Concomitant]
     Active Substance: ATORVASTATIN
     Indication: PRODUCT USED FOR UNKNOWN INDICATION
     Dosage: OVERDOSE
     Route: 065
     Dates: start: 20140110, end: 20140330
  6. PARACETAMOL [Suspect]
     Active Substance: ACETAMINOPHEN
     Indication: PRODUCT USED FOR UNKNOWN INDICATION
     Dosage: ADDITIONAL INFO: OVERDOSE
     Route: 065
     Dates: start: 20140510, end: 20140510
  7. BISOPROLOL FUMARATE. [Suspect]
     Active Substance: BISOPROLOL FUMARATE
     Indication: PRODUCT USED FOR UNKNOWN INDICATION
     Route: 065
     Dates: start: 20131008
  8. BISOPROLOL FUMARATE. [Suspect]
     Active Substance: BISOPROLOL FUMARATE
     Route: 065
  9. RAMIPRIL. [Suspect]
     Active Substance: RAMIPRIL
     Dosage: STRENGTH: 2.5 MG
     Route: 065
     Dates: start: 20131010, end: 20141201
  10. AMLODIPINE BESILATE [Suspect]
     Active Substance: AMLODIPINE BESYLATE
     Indication: PRODUCT USED FOR UNKNOWN INDICATION
     Route: 065
  11. ASPIRIN. [Suspect]
     Active Substance: ASPIRIN
     Indication: PRODUCT USED FOR UNKNOWN INDICATION
     Dosage: STRENGTH 75 MG
     Route: 065
     Dates: start: 20131008, end: 20141201
  12. ASPIRIN. [Suspect]
     Active Substance: ASPIRIN
     Dosage: STRENGTH: 75 MG
     Route: 065
     Dates: start: 20141201, end: 20141201
  13. FLUOXETINE [Suspect]
     Active Substance: FLUOXETINE HYDROCHLORIDE
     Indication: DEPRESSION
     Dosage: OVERDOSE-FORM:UNKNOWN
     Route: 048
     Dates: start: 20120813
  14. FLUOXETINE [Suspect]
     Active Substance: FLUOXETINE HYDROCHLORIDE
     Dosage: STRENGTH 20 MG
     Route: 048
     Dates: start: 20141201, end: 20141217
  15. FUROSEMIDE. [Concomitant]
     Active Substance: FUROSEMIDE
     Indication: PRODUCT USED FOR UNKNOWN INDICATION
     Route: 065
  16. BISOPROLOL FUMARATE. [Suspect]
     Active Substance: BISOPROLOL FUMARATE
     Dosage: STRENGTH: 2.5 MG
     Route: 065
     Dates: start: 20141201, end: 20141201
  17. RAMIPRIL. [Suspect]
     Active Substance: RAMIPRIL
     Dosage: STRENGTH: 2.5 MG?OVERDOSE-FORM:UNKNOWN
     Route: 065
     Dates: start: 20141201, end: 20141201
  18. AMLODIPINE BESILATE [Suspect]
     Active Substance: AMLODIPINE BESYLATE
     Dosage: OVERDOSE
     Route: 065
     Dates: start: 20101001
  19. ATORVASTATIN [Concomitant]
     Active Substance: ATORVASTATIN
     Dosage: OVERDOSE
     Route: 065
     Dates: start: 20131008, end: 20131219
  20. IBUPROFEN. [Suspect]
     Active Substance: IBUPROFEN
     Indication: PRODUCT USED FOR UNKNOWN INDICATION
     Route: 065
     Dates: start: 20141201, end: 20141201
  21. IBUPROFEN. [Suspect]
     Active Substance: IBUPROFEN
     Dosage: STRENGTH: 200 MG?VERDOSE-FORM:UNKNOWN
     Route: 065
     Dates: start: 20141201, end: 20141201
  22. CLOPIDOGREL [Concomitant]
     Active Substance: CLOPIDOGREL BISULFATE
     Indication: PRODUCT USED FOR UNKNOWN INDICATION
     Route: 065
     Dates: start: 20131008
  23. CODEINE PHOSPHATE [Concomitant]
     Active Substance: CODEINE PHOSPHATE
     Indication: PRODUCT USED FOR UNKNOWN INDICATION
     Dosage: QDS PRN
     Route: 048
     Dates: start: 20140416
  24. GLYCERYL TRINITRATE [Concomitant]
     Active Substance: NITROGLYCERIN
     Indication: PRODUCT USED FOR UNKNOWN INDICATION
     Route: 065
     Dates: start: 20131008
  25. AMOXICILLIN AND CLAVULANATE POTASSIUM [Concomitant]
     Active Substance: AMOXICILLIN\CLAVULANATE POTASSIUM
     Indication: PRODUCT USED FOR UNKNOWN INDICATION
     Route: 042
     Dates: start: 20140416, end: 20140418
  26. IBUPROFEN. [Suspect]
     Active Substance: IBUPROFEN
     Dosage: OVERDOSE-FORM:UNKNOWN
     Route: 065
     Dates: start: 20141119
  27. AMLODIPINE BESILATE [Suspect]
     Active Substance: AMLODIPINE BESYLATE
     Dosage: STRENGTH: 10 MG?OVERDOSE
     Route: 065
     Dates: start: 20141201, end: 20141201
  28. ASPIRIN. [Suspect]
     Active Substance: ASPIRIN
     Route: 065
     Dates: start: 20131008
  29. GLUCAGON. [Concomitant]
     Active Substance: GLUCAGON
     Indication: PRODUCT USED FOR UNKNOWN INDICATION
     Route: 065
     Dates: start: 20141201, end: 20141201
  30. RAMIPRIL. [Suspect]
     Active Substance: RAMIPRIL
     Indication: PRODUCT USED FOR UNKNOWN INDICATION
     Dosage: OVERDOSE-FORM:UNKNOWN
     Route: 065
     Dates: start: 20131010
  31. ASPIRIN W/CAFFEINE [Suspect]
     Active Substance: ASPIRIN\CAFFEINE
     Indication: PRODUCT USED FOR UNKNOWN INDICATION
     Dosage: 200 MG X 16?OVERDOSE
     Route: 065
  32. AMOXICILLIN AND CLAVULANATE POTASSIUM [Concomitant]
     Active Substance: AMOXICILLIN\CLAVULANATE POTASSIUM
     Route: 048
     Dates: start: 20140418, end: 20140423
  33. AMOXICILLIN AND CLAVULANATE POTASSIUM [Concomitant]
     Active Substance: AMOXICILLIN\CLAVULANATE POTASSIUM
     Route: 042
     Dates: start: 20140416, end: 20140418
  34. ATORVASTATIN [Concomitant]
     Active Substance: ATORVASTATIN
     Dosage: OVERDOSE
     Route: 065
     Dates: start: 20131008, end: 20140330
  35. GLUCAGON. [Concomitant]
     Active Substance: GLUCAGON
     Route: 042
     Dates: start: 20141201, end: 20141201

REACTIONS (10)
  - Hypotension [Recovered/Resolved]
  - Vomiting [Recovered/Resolved]
  - Unresponsive to stimuli [Recovered/Resolved]
  - Intentional overdose [Recovered/Resolved]
  - Depressed mood [Not Recovered/Not Resolved]
  - Syncope [Recovered/Resolved]
  - Dizziness [Recovered/Resolved]
  - Suicide attempt [Recovered/Resolved]
  - Bradycardia [Recovered/Resolved]
  - Nausea [Recovered/Resolved]

NARRATIVE: CASE EVENT DATE: 20141201
